FAERS Safety Report 7110931-X (Version None)
Quarter: 2010Q4

REPORT INFORMATION
  Report Type: 
  Country: None (occurrence: None)
  Receive Date: 20101118
  Receipt Date: 20091001
  Transmission Date: 20110411
  Serious: No
  Sender: FDA-Public Use
  Company Number: US-TEVA-211051USA

PATIENT
  Age: 18 Year
  Sex: Male

DRUGS (2)
  1. ALBUTEROL SULFATE AUTOHALER [Suspect]
     Indication: INHALATION THERAPY
     Route: 055
  2. ALBUTEROL SULFATE AUTOHALER [Suspect]
     Indication: ASTHMA

REACTIONS (1)
  - PULMONARY FUNCTION TEST DECREASED [None]
